FAERS Safety Report 7781195-9 (Version None)
Quarter: 2011Q3

REPORT INFORMATION
  Report Type: 
  Country: None (occurrence: None)
  Receive Date: 20110927
  Receipt Date: 20110914
  Transmission Date: 20111222
  Serious: Yes (Disabling, Other)
  Sender: FDA-Public Use
  Company Number: PHHY2011BR82665

PATIENT
  Sex: Female

DRUGS (3)
  1. DAFLON [Concomitant]
     Indication: CARDIOVASCULAR DISORDER
     Dosage: 1 DF, DAILY
     Route: 048
  2. PROLOPA [Concomitant]
     Indication: PARKINSON'S DISEASE
     Dosage: 1 DF, DAILY
     Route: 048
     Dates: start: 20090101
  3. DIOVAN [Suspect]
     Indication: HYPERTENSION
     Dosage: 80 MG, DAILY
     Route: 048

REACTIONS (3)
  - FALL [None]
  - FEMUR FRACTURE [None]
  - WOUND [None]
